FAERS Safety Report 4906190-6 (Version None)
Quarter: 2006Q1

REPORT INFORMATION
  Report Type: 
  Country: None (occurrence: None)
  Receive Date: 20060207
  Receipt Date: 20060207
  Transmission Date: 20060701
  Serious: Yes (Hospitalization)
  Sender: FDA-Public Use
  Company Number: None

PATIENT
  Age: 58 Year
  Sex: Male
  Weight: 189.5 kg

DRUGS (25)
  1. ROSIGLITAZONE [Suspect]
     Indication: DIABETES MELLITUS
     Dosage: 8 MG DAILY
     Dates: start: 20050421, end: 20051229
  2. GEMFIBROZIL [Concomitant]
  3. METFORMIN HCL [Concomitant]
  4. INSULIN, ASPART HUMAN 100 U/ML [Concomitant]
  5. DM 10/GUAIFENSEN [Concomitant]
  6. CITALOPRAM HYDROBROMIDE [Concomitant]
  7. OMEPRAZOLE [Concomitant]
  8. LORATADINE [Concomitant]
  9. NITROGLYCERIN [Concomitant]
  10. PROPOXYPHENE N 100/APAP [Concomitant]
  11. BETAMETHASONE DIPR/CLOTRIM 1% [Concomitant]
  12. POTASSIUM CHLORIDE [Concomitant]
  13. CLOTRIMAZOLE 1% [Concomitant]
  14. INSULIN SYRINGE [Concomitant]
  15. FUROSEMIDE [Concomitant]
  16. LISINOPRIL [Concomitant]
  17. GLUCOSE [Concomitant]
  18. HUMULIN N [Concomitant]
  19. GLIPIZIDE [Concomitant]
  20. HC 1%.NEOMYCIN3.5 MG/ POLIMYXIN OTIC SUSP [Concomitant]
  21. ALBUTEROL [Concomitant]
  22. FLUNISOLIDE [Concomitant]
  23. FOLIC ACID [Concomitant]
  24. TRAMADOL HCL [Concomitant]
  25. ALOH/MGOH/SIMETH XTRA STRENGTH [Concomitant]

REACTIONS (1)
  - CARDIAC FAILURE CONGESTIVE [None]
